FAERS Safety Report 7706240-8 (Version None)
Quarter: 2011Q3

REPORT INFORMATION
  Report Type: 
  Country: None (occurrence: None)
  Receive Date: 20110818
  Receipt Date: 20110811
  Transmission Date: 20111222
  Serious: Yes (Hospitalization)
  Sender: FDA-Public Use
  Company Number: 2011-US-0089

PATIENT
  Age: 72 Year
  Sex: Female

DRUGS (1)
  1. SANCUSO [Suspect]
     Indication: CHEMOTHERAPY
     Dosage: TRANSDERMAL
     Route: 062

REACTIONS (2)
  - PRODUCT ADHESION ISSUE [None]
  - NAUSEA [None]
